FAERS Safety Report 6807025-7 (Version None)
Quarter: 2010Q2

REPORT INFORMATION
  Report Type: 
  Country: None (occurrence: None)
  Receive Date: 20100629
  Receipt Date: 20080710
  Transmission Date: 20101027
  Serious: Yes (Other)
  Sender: FDA-Public Use
  Company Number: US-PFIZER INC-2008057746

PATIENT
  Sex: Female
  Weight: 90.3 kg

DRUGS (5)
  1. ALPRAZOLAM [Suspect]
     Indication: ANXIETY
  2. ALPRAZOLAM [Suspect]
     Indication: PANIC ATTACK
  3. ANTIHYPERTENSIVES [Concomitant]
  4. ANTINEOPLASTIC AGENTS [Concomitant]
  5. ALL OTHER THERAPEUTIC PRODUCTS [Concomitant]

REACTIONS (4)
  - DRUG DEPENDENCE [None]
  - DRUG DOSE OMISSION [None]
  - DRUG INEFFECTIVE [None]
  - HYPOAESTHESIA [None]
